FAERS Safety Report 5392146-9 (Version None)
Quarter: 2007Q3

REPORT INFORMATION
  Report Type: 
  Country: None (occurrence: None)
  Receive Date: 20070718
  Receipt Date: 20070718
  Transmission Date: 20080115
  Serious: Yes (Life-Threatening, Hospitalization)
  Sender: FDA-Public Use
  Company Number: None

PATIENT
  Age: 40 Year
  Sex: Male

DRUGS (1)
  1. GADOPENTETATE DIMEGLUMINE [Suspect]
     Dosage: 700UNITS ONCE PO
     Route: 048
     Dates: start: 20070630, end: 20070630

REACTIONS (8)
  - ABDOMINAL PAIN [None]
  - CHILLS [None]
  - HYPERVENTILATION [None]
  - MUSCLE SPASMS [None]
  - MYALGIA [None]
  - NEUTROPENIA [None]
  - PYREXIA [None]
  - RASH [None]
